FAERS Safety Report 24215130 (Version 1)
Quarter: 2024Q3

REPORT INFORMATION
  Report Type: Spontaneous
  Country: GB (occurrence: GB)
  Receive Date: 20240816
  Receipt Date: 20240816
  Transmission Date: 20241017
  Serious: Yes (Other)
  Sender: ROCHE
  Company Number: GB-ROCHE-10000050274

PATIENT
  Age: 73 Year
  Sex: Female

DRUGS (1)
  1. FARICIMAB [Suspect]
     Active Substance: FARICIMAB
     Indication: Neovascular age-related macular degeneration
     Route: 050
     Dates: start: 20240328, end: 20240630

REACTIONS (2)
  - Breast swelling [Recovered/Resolved]
  - Breast reconstruction [Recovered/Resolved]

NARRATIVE: CASE EVENT DATE: 20240328
